FAERS Safety Report 12768702 (Version 1)
Quarter: 2016Q3

REPORT INFORMATION
  Report Type: Spontaneous
  Country: US (occurrence: US)
  Receive Date: 20160921
  Receipt Date: 20160921
  Transmission Date: 20161109
  Serious: No
  Sender: FDA-Public Use
  Company Number: US-JAZZ-2016-US-010175

PATIENT
  Age: 56 Year
  Sex: Female
  Weight: 66.67 kg

DRUGS (28)
  1. ALBUTEROL SULFATE. [Concomitant]
     Active Substance: ALBUTEROL SULFATE
  2. FLEXERIL [Concomitant]
     Active Substance: CYCLOBENZAPRINE HYDROCHLORIDE
  3. FOLIC ACID. [Concomitant]
     Active Substance: FOLIC ACID
  4. SYNTHROID [Concomitant]
     Active Substance: LEVOTHYROXINE SODIUM
  5. LAMOTRIGINE. [Concomitant]
     Active Substance: LAMOTRIGINE
  6. METHOTREXATE. [Concomitant]
     Active Substance: METHOTREXATE
  7. POTASSIUM GLUCONATE [Concomitant]
     Active Substance: POTASSIUM GLUCONATE
  8. PROMETHAZINE [Concomitant]
     Active Substance: PROMETHAZINE\PROMETHAZINE HYDROCHLORIDE
  9. VENLAFAXINE HCL [Concomitant]
     Active Substance: VENLAFAXINE HYDROCHLORIDE
  10. XYREM [Suspect]
     Active Substance: SODIUM OXYBATE
     Indication: NARCOLEPSY
     Dosage: 3 G, BID
     Route: 048
     Dates: start: 201605
  11. DICLOFENAC SODIUM DR [Concomitant]
     Active Substance: DICLOFENAC SODIUM
  12. MECLIZINE [Concomitant]
     Active Substance: MECLIZINE HYDROCHLORIDE
  13. MULTIVITAMINS [Concomitant]
     Active Substance: VITAMINS
  14. VITAMIN B COMPLEX [Concomitant]
     Active Substance: CYANOCOBALAMIN\DEXPANTHENOL\NIACINAMIDE\PYRIDOXINE HYDROCHLORIDE\RIBOFLAVIN 5^-PHOSPHATE SODIUM\THIAMINE HYDROCHLORIDE\VITAMIN B COMPLEX
  15. ALENDRONATE SODIUM. [Concomitant]
     Active Substance: ALENDRONATE SODIUM
  16. GABAPENTIN. [Concomitant]
     Active Substance: GABAPENTIN
  17. OMEPRAZOLE DR [Concomitant]
     Active Substance: OMEPRAZOLE
  18. VITAMIN D3 [Concomitant]
     Active Substance: CHOLECALCIFEROL
  19. IBUPROFEN. [Concomitant]
     Active Substance: IBUPROFEN
  20. PROAIR HFA [Concomitant]
     Active Substance: ALBUTEROL SULFATE
  21. VITAMIN B12 [Concomitant]
     Active Substance: CYANOCOBALAMIN
  22. CARDIZEM CD [Concomitant]
     Active Substance: DILTIAZEM HYDROCHLORIDE
  23. FLONASE ALLERGY RLF [Concomitant]
  24. PRAMIPEXOLE. [Concomitant]
     Active Substance: PRAMIPEXOLE
  25. TYLENOL ARTHRITIS ER [Concomitant]
  26. CALCIUM +D [Concomitant]
     Active Substance: CALCIUM\VITAMIN D
  27. NUVIGIL [Concomitant]
     Active Substance: ARMODAFINIL
  28. PHENTERMINE. [Concomitant]
     Active Substance: PHENTERMINE

REACTIONS (1)
  - Amnesia [Not Recovered/Not Resolved]

NARRATIVE: CASE EVENT DATE: 201605
